FAERS Safety Report 8788704 (Version 1)
Quarter: 2012Q4

REPORT INFORMATION
  Report Type: 
  Country: DE (occurrence: DE)
  Receive Date: 20120914
  Receipt Date: 20120914
  Transmission Date: 20130627
  Serious: Yes (Other)
  Sender: FDA-Public Use
  Company Number: PHHY2012DE079543

PATIENT
  Sex: Male

DRUGS (1)
  1. RITALIN [Suspect]
     Dosage: 10 mg in morning, 5 mg at noon
     Route: 048
     Dates: start: 20110826, end: 20120614

REACTIONS (1)
  - Anxiety [Recovering/Resolving]
